FAERS Safety Report 9402610 (Version 1)
Quarter: 2013Q3

REPORT INFORMATION
  Report Type: Spontaneous
  Country: US (occurrence: US)
  Receive Date: 20130716
  Receipt Date: 20130716
  Transmission Date: 20140515
  Serious: Yes (Hospitalization, Other)
  Sender: FDA-Public Use
  Company Number: PHHY2013US073108

PATIENT
  Age: 52 Year
  Sex: Female

DRUGS (6)
  1. FLUCONAZOLE [Suspect]
  2. PHENYTOIN [Interacting]
     Route: 042
  3. TACROLIMUS [Concomitant]
  4. FOSPHENYTOIN [Concomitant]
     Route: 042
  5. VANCOMYCIN [Concomitant]
  6. MEROPENEM [Concomitant]

REACTIONS (6)
  - Tachycardia [Recovered/Resolved]
  - Electrocardiogram QRS complex prolonged [Recovered/Resolved]
  - Left ventricular dysfunction [Recovered/Resolved]
  - Electrocardiogram QT prolonged [Recovered/Resolved]
  - Drug level increased [Recovered/Resolved]
  - Drug interaction [Recovered/Resolved]
